FAERS Safety Report 5715882-0 (Version None)
Quarter: 2008Q2

REPORT INFORMATION
  Report Type: 
  Country: None (occurrence: None)
  Receive Date: 20080424
  Receipt Date: 20080421
  Transmission Date: 20081010
  Serious: Yes (Life-Threatening, Hospitalization)
  Sender: FDA-Public Use
  Company Number: JP-AVENTIS-200811190JP

PATIENT
  Age: 70 Year
  Sex: Male

DRUGS (7)
  1. LASIX [Suspect]
     Route: 048
     Dates: start: 20080318, end: 20080330
  2. AMIODARONE HCL [Suspect]
     Route: 048
     Dates: start: 20080318, end: 20080330
  3. SELARA [Suspect]
     Route: 048
     Dates: start: 20080318, end: 20080330
  4. LOSARTAN POTASSIUM AND HYDROCHLOROTHIAZIDE [Suspect]
  5. ALOSITOL [Suspect]
     Route: 048
     Dates: start: 20080318, end: 20080330
  6. ARTIST [Suspect]
     Route: 048
     Dates: start: 20080318, end: 20080330
  7. WARFARIN SODIUM [Suspect]
     Route: 048
     Dates: start: 20080318, end: 20080330

REACTIONS (2)
  - HEPATITIS FULMINANT [None]
  - RENAL FAILURE ACUTE [None]
